FAERS Safety Report 21087595 (Version 1)
Quarter: 2022Q3

REPORT INFORMATION
  Report Type: Spontaneous
  Country: US (occurrence: US)
  Receive Date: 20220715
  Receipt Date: 20220715
  Transmission Date: 20221027
  Serious: No
  Sender: FDA-Public Use
  Company Number: US-009507513-2207USA000037

PATIENT
  Age: 1 Year
  Sex: Female

DRUGS (6)
  1. M-M-R II [Suspect]
     Active Substance: MEASLES VIRUS STRAIN ENDERS^ ATTENUATED EDMONSTON LIVE ANTIGEN\MUMPS VIRUS STRAIN B LEVEL JERYL LYNN
     Indication: Prophylaxis
     Dosage: .5 MILLILITER
     Route: 058
     Dates: start: 20220630
  2. VARIVAX [Suspect]
     Active Substance: VARICELLA-ZOSTER VIRUS STRAIN OKA/MERCK LIVE ANTIGEN
     Indication: Prophylaxis
     Dosage: .5 MILLILITER
     Route: 058
     Dates: start: 20220630
  3. PEDVAXHIB [Suspect]
     Active Substance: HAEMOPHILUS INFLUENZAE TYPE B CAPSULAR POLYSACCHARIDE MENINGOCOCCAL OUTER MEMBRANE PROTEIN CONJUGATE
     Indication: Prophylaxis
     Dosage: .5 MILLILITER
     Route: 058
     Dates: start: 20220630
  4. PEDVAXHIB [Suspect]
     Active Substance: HAEMOPHILUS INFLUENZAE TYPE B CAPSULAR POLYSACCHARIDE MENINGOCOCCAL OUTER MEMBRANE PROTEIN CONJUGATE
     Dosage: .5 MILLILITER
     Route: 058
     Dates: start: 20220620
  5. STERILE DILUENT (WATER) [Suspect]
     Active Substance: WATER
     Dosage: UNK
  6. PREVNAR 13 [Concomitant]
     Active Substance: PNEUMOCOCCAL 13-VALENT CONJUGATE VACCINE

REACTIONS (4)
  - Product preparation error [Unknown]
  - Accidental overdose [Unknown]
  - Incorrect route of product administration [Unknown]
  - No adverse event [Unknown]

NARRATIVE: CASE EVENT DATE: 20220630
